FAERS Safety Report 5007442-4 (Version None)
Quarter: 2006Q2

REPORT INFORMATION
  Report Type: 
  Country: None (occurrence: None)
  Receive Date: 20060519
  Receipt Date: 20060519
  Transmission Date: 20061013
  Serious: Yes (Disabling, Other)
  Sender: FDA-Public Use
  Company Number: None

PATIENT
  Age: 34 Year
  Sex: Female
  Weight: 103.4201 kg

DRUGS (1)
  1. ADVAIR DISKUS 250/50 [Suspect]
     Indication: ASTHMA
     Dosage: 1 PUFF   TWICE DAILY   INHAL
     Route: 055
     Dates: start: 20051001, end: 20060518

REACTIONS (13)
  - ABDOMINAL DISTENSION [None]
  - ADRENAL DISORDER [None]
  - DRUG EFFECT DECREASED [None]
  - FATIGUE [None]
  - FLUID RETENTION [None]
  - HYPOAESTHESIA [None]
  - HYPOTHYROIDISM [None]
  - MENTAL DISORDER [None]
  - MUSCULOSKELETAL CHEST PAIN [None]
  - OEDEMA PERIPHERAL [None]
  - PAIN [None]
  - POISONING [None]
  - WEIGHT INCREASED [None]
